FAERS Safety Report 9271546 (Version 1)
Quarter: 2013Q2

REPORT INFORMATION
  Report Type: Spontaneous
  Country: FR (occurrence: FR)
  Receive Date: 20130506
  Receipt Date: 20130506
  Transmission Date: 20140414
  Serious: Yes (Other)
  Sender: FDA-Public Use
  Company Number: FR-VERTEX PHARMACEUTICALS INC-2013-005716

PATIENT
  Sex: 0

DRUGS (6)
  1. INCIVO [Suspect]
     Indication: HEPATITIS C
     Dosage: 375 MG, TID
     Route: 065
  2. PEGINTERFERON ALFA [Suspect]
     Indication: CRYOGLOBULINAEMIA
     Dosage: DOSAGE FORM: UNSPECIFIED
     Route: 065
  3. PEGINTERFERON ALFA [Suspect]
     Indication: HEPATITIS C
  4. RIBAVIRIN [Suspect]
     Indication: CRYOGLOBULINAEMIA
     Dosage: DOSAGE FORM: UNSPECIFIED
     Route: 065
  5. RIBAVIRIN [Suspect]
     Indication: HEPATITIS C
  6. BOCEPREVIR [Suspect]
     Indication: HEPATITIS C
     Dosage: 800 MG, TID

REACTIONS (7)
  - Neutropenia [Unknown]
  - Bacterial infection [Unknown]
  - Anaemia [Unknown]
  - Thrombocytopenia [Unknown]
  - Asthenia [Unknown]
  - Nausea [Unknown]
  - Rash [Unknown]
